FAERS Safety Report 5487136-1 (Version None)
Quarter: 2007Q4

REPORT INFORMATION
  Report Type: 
  Country: None (occurrence: None)
  Receive Date: 20071016
  Receipt Date: 20071003
  Transmission Date: 20080405
  Serious: Yes (Hospitalization)
  Sender: FDA-Public Use
  Company Number: CA-ELI_LILLY_AND_COMPANY-CA200710001290

PATIENT
  Sex: Female

DRUGS (5)
  1. FORTEO [Suspect]
     Indication: OSTEOPOROSIS
     Dosage: 20 UG, DAILY (1/D)
     Route: 058
     Dates: start: 20060921
  2. LIPITOR [Concomitant]
  3. AGGRENOX [Concomitant]
  4. CALCIUM [Concomitant]
  5. MULTIVITAMINS, COMBINATIONS [Concomitant]

REACTIONS (5)
  - BALANCE DISORDER [None]
  - CEREBROVASCULAR ACCIDENT [None]
  - DISORIENTATION [None]
  - INNER EAR DISORDER [None]
  - VERTIGO [None]
